FAERS Safety Report 24793747 (Version 1)
Quarter: 2024Q4

REPORT INFORMATION
  Report Type: Spontaneous
  Country: HK (occurrence: HK)
  Receive Date: 20241231
  Receipt Date: 20241231
  Transmission Date: 20250115
  Serious: Yes (Other)
  Sender: ALKEM
  Company Number: HK-ALKEM LABORATORIES LIMITED-HK-ALKEM-2024-04117

PATIENT
  Age: 58 Year
  Sex: Male

DRUGS (4)
  1. TACROLIMUS [Interacting]
     Active Substance: TACROLIMUS
     Indication: Product used for unknown indication
     Dosage: UNK
     Route: 065
  2. TACROLIMUS [Interacting]
     Active Substance: TACROLIMUS
     Dosage: UNK (RESTARTED)
     Route: 065
  3. CLARITHROMYCIN [Interacting]
     Active Substance: CLARITHROMYCIN
     Indication: Pneumonia
     Dosage: 500 MILLIGRAM, BID (TWICE DAILY)
     Route: 065
  4. PREDNISONE [Interacting]
     Active Substance: PREDNISONE
     Indication: Pneumonia
     Dosage: 50 MILLIGRAM, OD
     Route: 065

REACTIONS (4)
  - Neurotoxicity [Recovered/Resolved]
  - Toxicity to various agents [Unknown]
  - Drug level increased [Recovering/Resolving]
  - Drug interaction [Unknown]
